FAERS Safety Report 6762620-9 (Version None)
Quarter: 2010Q2

REPORT INFORMATION
  Report Type: 
  Country: None (occurrence: None)
  Receive Date: 20100609
  Receipt Date: 20100602
  Transmission Date: 20101027
  Serious: Yes (Hospitalization)
  Sender: FDA-Public Use
  Company Number: JP-MERCK-1006USA00795

PATIENT
  Age: 32 Year
  Sex: Female

DRUGS (8)
  1. PEPCID RPD [Suspect]
     Indication: GASTRIC ULCER
     Route: 048
     Dates: start: 20100512
  2. LUVOX [Suspect]
     Route: 048
     Dates: start: 20100118, end: 20100523
  3. LEVOTOMIN (LEVOMEPROMAZINE MALEATE) [Suspect]
     Route: 048
     Dates: start: 20080722
  4. PRIMPERAN TAB [Suspect]
     Route: 048
     Dates: start: 20100512, end: 20100512
  5. ZYPREXA [Concomitant]
     Route: 048
     Dates: start: 20080422
  6. PAXIL [Suspect]
     Route: 048
     Dates: start: 20081021
  7. MUCOSTA [Suspect]
     Route: 048
     Dates: start: 20100512
  8. HALCION [Suspect]
     Route: 048
     Dates: start: 20090729, end: 20100525

REACTIONS (1)
  - LIVER DISORDER [None]
